FAERS Safety Report 7355220-3 (Version None)
Quarter: 2011Q1

REPORT INFORMATION
  Report Type: 
  Country: None (occurrence: None)
  Receive Date: 20110316
  Receipt Date: 20110311
  Transmission Date: 20110831
  Serious: Yes (Death, Life-Threatening, Hospitalization)
  Sender: FDA-Public Use
  Company Number: CA-SANOFI-AVENTIS-2010SA071876

PATIENT
  Age: 66 Year
  Sex: Female
  Weight: 101 kg

DRUGS (19)
  1. TRASTUZUMAB [Concomitant]
     Dates: start: 20101104, end: 20101104
  2. BRICANYL [Concomitant]
     Route: 055
  3. ROSUVASTATIN CALCIUM [Concomitant]
     Route: 048
     Dates: start: 20090901
  4. ECTOSONE [Concomitant]
  5. BUDESONIDE/FORMOTEROL [Concomitant]
     Route: 055
     Dates: start: 20100601
  6. TAXOTERE [Suspect]
     Route: 041
     Dates: start: 20101104, end: 20101104
  7. HYDROCHLOROTHIAZIDE [Concomitant]
     Route: 048
     Dates: start: 20080101
  8. GRANISETRON HCL [Concomitant]
     Indication: PREMEDICATION
     Route: 048
     Dates: start: 20101013
  9. PROCHLORPERAZINE [Concomitant]
     Indication: PREMEDICATION
     Route: 048
     Dates: start: 20101013
  10. MICARDIS [Concomitant]
     Route: 048
     Dates: start: 20091001
  11. TAXOTERE [Suspect]
     Indication: BREAST CANCER
     Route: 041
     Dates: start: 20101013, end: 20101013
  12. DEXAMETHASONE [Concomitant]
     Indication: PREMEDICATION
     Route: 048
     Dates: start: 20101013
  13. DEXAMETHASONE [Concomitant]
     Route: 048
     Dates: start: 20101104
  14. GRANISETRON HCL [Concomitant]
     Route: 048
     Dates: start: 20101104
  15. TRASTUZUMAB [Concomitant]
     Indication: BREAST CANCER
     Dates: start: 20101013, end: 20101013
  16. CLOTRIMAZOLE [Concomitant]
     Dates: start: 20101001
  17. METOPROLOL SUCCINATE [Concomitant]
     Route: 048
     Dates: start: 20100801
  18. VITAMIN D [Concomitant]
     Dosage: DOSE:1000 UNIT(S)
     Route: 048
  19. SALBUTAMOL [Concomitant]
     Route: 055

REACTIONS (2)
  - DEATH [None]
  - DYSPNOEA [None]
